FAERS Safety Report 8602015-6 (Version None)
Quarter: 2012Q3

REPORT INFORMATION
  Report Type: 
  Country: None (occurrence: None)
  Receive Date: 20120817
  Receipt Date: 20120813
  Transmission Date: 20120928
  Serious: Yes (Other)
  Sender: FDA-Public Use
  Company Number: US-PFIZER INC-2012197190

PATIENT
  Sex: Female

DRUGS (2)
  1. CADUET [Suspect]
     Dosage: UNK
  2. EFFEXOR XR [Suspect]
     Dosage: UNK

REACTIONS (2)
  - DIABETIC COMA [None]
  - DIABETES MELLITUS [None]
